FAERS Safety Report 7129074-4 (Version None)
Quarter: 2010Q4

REPORT INFORMATION
  Report Type: 
  Country: None (occurrence: None)
  Receive Date: 20101130
  Receipt Date: 20101122
  Transmission Date: 20110411
  Serious: Yes (Death, Hospitalization)
  Sender: FDA-Public Use
  Company Number: US-ROCHE-743830

PATIENT
  Age: 65 Year
  Sex: Female
  Weight: 47.4 kg

DRUGS (2)
  1. BEVACIZUMAB [Suspect]
     Indication: COLORECTAL CANCER
     Dosage: LAST ADMINISTERED DATE: 11 FEBRUARY 2010.
     Route: 042
     Dates: start: 20090818
  2. SORAFENIB [Suspect]
     Indication: COLORECTAL CANCER
     Dosage: START DATE OF COURSE ASSOCIATED WITH REPORT: 19 OCT 2010.
     Route: 065
     Dates: start: 20090818

REACTIONS (4)
  - CONVULSION [None]
  - HYPERTENSION [None]
  - PNEUMONIA [None]
  - REVERSIBLE POSTERIOR LEUKOENCEPHALOPATHY SYNDROME [None]
